FAERS Safety Report 21301555 (Version 1)
Quarter: 2022Q3

REPORT INFORMATION
  Report Type: Spontaneous
  Country: US (occurrence: None)
  Receive Date: 20220906
  Receipt Date: 20220906
  Transmission Date: 20221026
  Serious: Yes (Other)
  Sender: FDA-Public Use
  Company Number: None

PATIENT
  Age: 47 Year
  Sex: Female

DRUGS (8)
  1. BENLYSTA [Suspect]
     Active Substance: BELIMUMAB
     Dosage: FREQUENCY: 1 PEN UNDER THE SKIN (SUBCUTANEOUS INJECTION) ONCE EVERY 7 DAYS
     Route: 058
     Dates: start: 20220811
  2. CELECOXIB [Concomitant]
     Active Substance: CELECOXIB
  3. DULOXETINE [Concomitant]
     Active Substance: DULOXETINE
  4. GABAPENTIN [Concomitant]
     Active Substance: GABAPENTIN
  5. HYDROXYCHLOR [Concomitant]
  6. LEVOTHYROXINE [Concomitant]
     Active Substance: LEVOTHYROXINE
  7. TIZANIDINE [Concomitant]
     Active Substance: TIZANIDINE
  8. TRIAMCINOLON [Concomitant]

REACTIONS (4)
  - Fatigue [None]
  - Diarrhoea [None]
  - Loss of consciousness [None]
  - Product storage error [None]

NARRATIVE: CASE EVENT DATE: 20220811
